FAERS Safety Report 7630496-3 (Version None)
Quarter: 2011Q3

REPORT INFORMATION
  Report Type: 
  Country: None (occurrence: None)
  Receive Date: 20110722
  Receipt Date: 20110719
  Transmission Date: 20111222
  Serious: Yes (Other)
  Sender: FDA-Public Use
  Company Number: JP-PFIZER INC-2011108317

PATIENT
  Age: 42 Year
  Sex: Female

DRUGS (2)
  1. ATROPINE SULFATE HYDRATE [Concomitant]
     Dosage: UNK
     Dates: start: 20110512
  2. ATARAX [Suspect]
     Indication: PREOPERATIVE CARE
     Dosage: UNK
     Route: 030
     Dates: start: 20110512

REACTIONS (1)
  - SKIN NECROSIS [None]
